FAERS Safety Report 6447040-9 (Version None)
Quarter: 2009Q4

REPORT INFORMATION
  Report Type: 
  Country: None (occurrence: None)
  Receive Date: 20091119
  Receipt Date: 20091110
  Transmission Date: 20100525
  Serious: Yes (Other)
  Sender: FDA-Public Use
  Company Number: FR-ASTRAZENECA-2009SE26249

PATIENT
  Age: 13998 Day
  Sex: Female

DRUGS (7)
  1. CARBOCAINE [Suspect]
     Indication: NERVE BLOCK
     Route: 053
     Dates: start: 20090625, end: 20090625
  2. NAROPIN [Suspect]
     Indication: NERVE BLOCK
     Route: 053
     Dates: start: 20090625, end: 20090625
  3. ZOMIG [Concomitant]
     Indication: MIGRAINE
  4. AVLOCARDYL [Concomitant]
     Indication: TACHYCARDIA
  5. DIHYDROERGOTAMINE MESYLATE [Concomitant]
     Indication: MIGRAINE
  6. HYPNOVEL [Concomitant]
     Indication: SEDATION
     Dates: start: 20090625, end: 20090625
  7. ATARAX [Concomitant]
     Indication: PREMEDICATION
     Dates: start: 20090625, end: 20090625

REACTIONS (1)
  - CLONUS [None]
